FAERS Safety Report 13508936 (Version 2)
Quarter: 2017Q2

REPORT INFORMATION
  Report Type: Other
  Country: PL (occurrence: PL)
  Receive Date: 20170503
  Receipt Date: 20170605
  Transmission Date: 20170830
  Serious: Yes (Other)
  Sender: FDA-Public Use
  Company Number: PL-INCYTE CORPORATION-2017IN003330

PATIENT

DRUGS (1)
  1. JAKAVI [Suspect]
     Active Substance: RUXOLITINIB
     Indication: PROGRESSIVE MASSIVE FIBROSIS
     Dosage: UNK
     Route: 065

REACTIONS (2)
  - Splenomegaly [Unknown]
  - Tuberculosis [Unknown]
